FAERS Safety Report 8540970-3 (Version None)
Quarter: 2012Q3

REPORT INFORMATION
  Report Type: 
  Country: None (occurrence: None)
  Receive Date: 20120726
  Receipt Date: 20110812
  Transmission Date: 20120928
  Serious: No
  Sender: FDA-Public Use
  Company Number: US-ASTRAZENECA-2011SE48916

PATIENT
  Sex: Female

DRUGS (6)
  1. SEROQUEL XR [Suspect]
     Route: 048
  2. ZOLOFT [Concomitant]
  3. STRATTERA [Concomitant]
  4. SEROQUEL XR [Suspect]
     Route: 048
  5. KLONOPIN [Concomitant]
  6. BIAXIN [Concomitant]

REACTIONS (9)
  - HYPOAESTHESIA [None]
  - PYREXIA [None]
  - HEADACHE [None]
  - DIZZINESS [None]
  - NAUSEA [None]
  - PAIN [None]
  - SPEECH DISORDER [None]
  - SENSATION OF HEAVINESS [None]
  - DISTURBANCE IN ATTENTION [None]
